FAERS Safety Report 10096652 (Version 1)
Quarter: 2014Q2

REPORT INFORMATION
  Report Type: Spontaneous
  Country: US (occurrence: None)
  Receive Date: 20140421
  Receipt Date: 20140421
  Transmission Date: 20141212
  Serious: Yes (Other)
  Sender: FDA-Public Use
  Company Number: None

PATIENT
  Sex: Female
  Weight: 87.54 kg

DRUGS (1)
  1. SUBOXONE [Suspect]
     Indication: DRUG DEPENDENCE
     Dosage: 2 1/2-3, QD, SUBLINGUALLY
     Route: 060

REACTIONS (4)
  - Nausea [None]
  - Vomiting [None]
  - Abdominal pain [None]
  - Migraine [None]
